FAERS Safety Report 16177653 (Version 2)
Quarter: 2019Q2

REPORT INFORMATION
  Report Type: Spontaneous
  Country: SG (occurrence: SG)
  Receive Date: 20190410
  Receipt Date: 20190415
  Transmission Date: 20190711
  Serious: Yes (Other)
  Sender: FDA-Public Use
  Company Number: SG-SA-2019SA095096

PATIENT
  Age: 64 Year
  Sex: Male

DRUGS (2)
  1. METHOTREXATE. [Suspect]
     Active Substance: METHOTREXATE
     Indication: RHEUMATOID ARTHRITIS
     Dosage: 20 MG, QW
  2. LEFLUNOMIDE. [Suspect]
     Active Substance: LEFLUNOMIDE
     Indication: RHEUMATOID ARTHRITIS
     Dosage: 10 MG, QD

REACTIONS (6)
  - Atypical mycobacterial infection [Recovered/Resolved]
  - Lymphadenitis [Recovered/Resolved]
  - Sinusitis [Recovered/Resolved]
  - Lung disorder [Recovering/Resolving]
  - Cough [Recovered/Resolved]
  - Paranasal sinus hypersecretion [Recovered/Resolved]
